FAERS Safety Report 17401412 (Version 1)
Quarter: 2020Q1

REPORT INFORMATION
  Report Type: Spontaneous
  Country: US (occurrence: US)
  Receive Date: 20200126
  Receipt Date: 20200126
  Transmission Date: 20200409
  Serious: No
  Sender: FDA-Public Use
  Company Number: None

PATIENT
  Age: 56 Year
  Sex: Female

DRUGS (1)
  1. DULOXETINE (DULOXETINE HCL 20MG CAP, EC) [Suspect]
     Active Substance: DULOXETINE HYDROCHLORIDE
     Indication: ADJUSTMENT DISORDER WITH MIXED DISTURBANCE OF EMOTION AND CONDUCT
     Route: 048
     Dates: start: 20200106, end: 20200116

REACTIONS (1)
  - Angioedema [None]

NARRATIVE: CASE EVENT DATE: 20200116
